FAERS Safety Report 5673413-8 (Version None)
Quarter: 2008Q1

REPORT INFORMATION
  Report Type: 
  Country: None (occurrence: None)
  Receive Date: 20080319
  Receipt Date: 20080128
  Transmission Date: 20080703
  Serious: Yes (Death)
  Sender: FDA-Public Use
  Company Number: US-TYCO HEALTHCARE/MALLINCKRODT-T200800391

PATIENT

DRUGS (2)
  1. MEPERIDINE HCL [Suspect]
     Indication: SEDATIVE THERAPY
     Route: 051
  2. KETAMINE HCL [Suspect]
     Indication: SEDATIVE THERAPY

REACTIONS (8)
  - ANAPHYLACTIC REACTION [None]
  - CARDIAC ARREST [None]
  - HYPERTENSION [None]
  - HYPERTHERMIA [None]
  - HYPOTENSION [None]
  - HYPOXIC ENCEPHALOPATHY [None]
  - MUSCLE RIGIDITY [None]
  - UNRESPONSIVE TO STIMULI [None]
